FAERS Safety Report 8577548 (Version 4)
Quarter: 2013Q4

REPORT INFORMATION
  Report Type: Spontaneous
  Country: GB (occurrence: None)
  Receive Date: 20120517
  Receipt Date: 20131017
  Transmission Date: 20140711
  Serious: Yes (Other)
  Sender: FDA-Public Use
  Company Number: AUR-APL-2012-02147

PATIENT
  Age: 57 Year
  Sex: Male

DRUGS (4)
  1. RAMIPRIL [Suspect]
     Indication: HYPERTENSION
     Route: 048
  2. AMLODIPINE (AMLODIPINE) [Concomitant]
  3. TEGRETOL (CARBAMAZEPINE) UNKNOWN [Concomitant]
  4. TOPIRAMATE (TOPIRAMATE) [Concomitant]

REACTIONS (2)
  - Convulsion [None]
  - Condition aggravated [None]
